FAERS Safety Report 4845105-6 (Version None)
Quarter: 2005Q4

REPORT INFORMATION
  Report Type: 
  Country: None (occurrence: None)
  Receive Date: 20051205
  Receipt Date: 20051020
  Transmission Date: 20060501
  Serious: Yes (Death, Disabling)
  Sender: FDA-Public Use
  Company Number: 2005GB02040

PATIENT
  Age: 73 Year
  Sex: Female

DRUGS (4)
  1. ARIMIDEX [Suspect]
     Indication: BREAST CANCER
     Route: 048
     Dates: start: 20020101, end: 20050101
  2. ARIMIDEX [Suspect]
     Indication: METASTASES TO BONE
     Route: 048
     Dates: start: 20020101, end: 20050101
  3. PAROXETINE HCL [Concomitant]
     Indication: DEPRESSION
  4. VALPROATE SODIUM [Concomitant]
     Indication: AGITATION

REACTIONS (1)
  - DEMENTIA ALZHEIMER'S TYPE [None]
